FAERS Safety Report 8415370-7 (Version None)
Quarter: 2012Q2

REPORT INFORMATION
  Report Type: 
  Country: None (occurrence: None)
  Receive Date: 20120606
  Receipt Date: 20120531
  Transmission Date: 20120825
  Serious: Yes (Other)
  Sender: FDA-Public Use
  Company Number: PHHY2012JP045083

PATIENT
  Age: 23 Year
  Sex: Female

DRUGS (5)
  1. INTERFERON BETA-1B [Suspect]
     Indication: MULTIPLE SCLEROSIS RELAPSE
     Dosage: 4 MIU, QOD
     Route: 058
  2. LUTEIN [Concomitant]
  3. INTERFERON BETA-1B [Interacting]
     Dosage: 6 MIU, QOD
     Route: 058
  4. MELILOT [Interacting]
     Dosage: 10 MG/DAY
  5. INTERFERON BETA-1B [Interacting]
     Dosage: 8 MIU, QOD
     Route: 058

REACTIONS (3)
  - ASPARTATE AMINOTRANSFERASE INCREASED [None]
  - ALANINE AMINOTRANSFERASE INCREASED [None]
  - DRUG INTERACTION [None]
